FAERS Safety Report 10290032 (Version 2)
Quarter: 2014Q3

REPORT INFORMATION
  Report Type: Spontaneous
  Country: US (occurrence: None)
  Receive Date: 20140708
  Receipt Date: 20140808
  Transmission Date: 20150326
  Serious: Yes (Hospitalization, Other)
  Sender: FDA-Public Use
  Company Number: 2014-US-008180

PATIENT
  Age: 9 Year
  Sex: Female
  Weight: 23.1 kg

DRUGS (1)
  1. XYREM [Suspect]
     Active Substance: SODIUM OXYBATE
     Indication: NARCOLEPSY
     Route: 048
     Dates: start: 201301, end: 2013

REACTIONS (4)
  - Respiratory distress [None]
  - Femur fracture [None]
  - Off label use [None]
  - Obstruction [None]

NARRATIVE: CASE EVENT DATE: 20140620
